FAERS Safety Report 4689669-4 (Version None)
Quarter: 2005Q2

REPORT INFORMATION
  Report Type: 
  Country: None (occurrence: None)
  Receive Date: 20050608
  Receipt Date: 20040621
  Transmission Date: 20051028
  Serious: Yes (Death)
  Sender: FDA-Public Use
  Company Number: 2004-02897

PATIENT
  Age: 40 Year
  Sex: Male

DRUGS (1)
  1. INFED [Suspect]
     Dosage: TEST DOSE

REACTIONS (1)
  - ANAPHYLACTIC REACTION [None]
